FAERS Safety Report 17828586 (Version 1)
Quarter: 2020Q2

REPORT INFORMATION
  Report Type: Spontaneous
  Country: FR (occurrence: FR)
  Receive Date: 20200527
  Receipt Date: 20200527
  Transmission Date: 20200714
  Serious: Yes (Hospitalization)
  Sender: FDA-Public Use
  Company Number: FR-ASTRAZENECA-2020SE66703

PATIENT
  Age: 28 Year
  Sex: Female
  Weight: 59 kg

DRUGS (5)
  1. LEPTICUR [Suspect]
     Active Substance: TROPATEPINE HYDROCHLORIDE
     Indication: INTENTIONAL OVERDOSE
     Dosage: 10.0MG ONCE/SINGLE ADMINISTRATION
     Route: 048
     Dates: start: 20200414, end: 20200414
  2. IMOVANE [Suspect]
     Active Substance: ZOPICLONE
     Indication: INTENTIONAL OVERDOSE
     Dosage: NOT PRECISED
     Route: 048
     Dates: start: 20200414, end: 20200414
  3. SERESTA [Suspect]
     Active Substance: OXAZEPAM
     Indication: INTENTIONAL OVERDOSE
     Dosage: 700.0MG ONCE/SINGLE ADMINISTRATION
     Route: 048
     Dates: start: 20200414, end: 20200414
  4. QUETIAPINE. [Suspect]
     Active Substance: QUETIAPINE
     Indication: INTENTIONAL OVERDOSE
     Dosage: 1650.0MG ONCE/SINGLE ADMINISTRATION
     Route: 048
     Dates: start: 20200414, end: 20200414
  5. VENLAFAXINE [Suspect]
     Active Substance: VENLAFAXINE HYDROCHLORIDE
     Indication: INTENTIONAL OVERDOSE
     Dosage: 225.0MG ONCE/SINGLE ADMINISTRATION
     Route: 048
     Dates: start: 20200414, end: 20200414

REACTIONS (4)
  - Housebound [Recovered/Resolved]
  - Coma [Recovered/Resolved]
  - Poisoning deliberate [Recovered/Resolved]
  - Pneumonia aspiration [Recovering/Resolving]

NARRATIVE: CASE EVENT DATE: 20200414
